FAERS Safety Report 8627865 (Version 3)
Quarter: 2012Q4

REPORT INFORMATION
  Report Type: 
  Country: US (occurrence: US)
  Receive Date: 20120621
  Receipt Date: 20121003
  Transmission Date: 20130627
  Serious: Yes (Other)
  Sender: FDA-Public Use
  Company Number: US-PFIZER INC-2012145520

PATIENT
  Age: 70 Year
  Sex: Female
  Weight: 77.1 kg

DRUGS (4)
  1. PREMARIN [Suspect]
     Indication: HOT FLUSH
     Dosage: 0.625 mg, 1x/day
     Route: 048
  2. PREMARIN [Suspect]
     Indication: VULVOVAGINAL DRYNESS
  3. NEURONTIN [Suspect]
     Indication: BACK DISORDER
     Dosage: 300 mg, 2x/day
     Route: 048
  4. LIPITOR [Suspect]
     Indication: BLOOD CHOLESTEROL INCREASED
     Dosage: 40 mg, 1x/day
     Route: 048

REACTIONS (2)
  - Pharyngeal disorder [Unknown]
  - Dysphonia [Not Recovered/Not Resolved]
